FAERS Safety Report 6145435-4 (Version None)
Quarter: 2009Q2

REPORT INFORMATION
  Report Type: 
  Country: None (occurrence: None)
  Receive Date: 20090402
  Receipt Date: 20090318
  Transmission Date: 20091009
  Serious: Yes (Death)
  Sender: FDA-Public Use
  Company Number: 2009S1004746

PATIENT
  Age: 27 Year
  Sex: Male

DRUGS (4)
  1. ZYPREXA [Suspect]
  2. LEXAPRO [Concomitant]
  3. KEMADRIN [Concomitant]
  4. SEPROXETINE [Concomitant]

REACTIONS (2)
  - ACCIDENT [None]
  - DRUG TOXICITY [None]
